FAERS Safety Report 4825734-6 (Version None)
Quarter: 2005Q4

REPORT INFORMATION
  Report Type: 
  Country: None (occurrence: None)
  Receive Date: 20051111
  Receipt Date: 20051107
  Transmission Date: 20060501
  Serious: Yes (Hospitalization)
  Sender: FDA-Public Use
  Company Number: AU-BOEHRINGER INGELHEIM PHARMACEUTICALS, INC.-2005-BP-19534AU

PATIENT
  Age: 66 Year
  Sex: Female

DRUGS (6)
  1. MOBIC [Suspect]
     Indication: SPONDYLITIS
     Route: 048
     Dates: end: 20041207
  2. ASPIRIN [Suspect]
     Route: 048
  3. RAMIPRIL [Concomitant]
     Route: 048
  4. ATENOLOL [Concomitant]
     Route: 048
  5. ARTOVASTATIN [Concomitant]
     Route: 048
  6. GEMFIBROZIL [Concomitant]
     Route: 048

REACTIONS (6)
  - ACUTE MYOCARDIAL INFARCTION [None]
  - HAEMATEMESIS [None]
  - HAEMOGLOBIN DECREASED [None]
  - MELAENA [None]
  - SINUS TACHYCARDIA [None]
  - TROPONIN INCREASED [None]
